FAERS Safety Report 4611093-0 (Version None)
Quarter: 2005Q2

REPORT INFORMATION
  Report Type: 
  Country: None (occurrence: None)
  Receive Date: 20050314
  Receipt Date: 20050113
  Transmission Date: 20051028
  Serious: Yes (Death, Hospitalization, Other)
  Sender: FDA-Public Use
  Company Number: USA040876772

PATIENT
  Age: 70 Year
  Sex: Male
  Weight: 95 kg

DRUGS (6)
  1. ALIMTA [Suspect]
     Indication: MESOTHELIOMA
     Dosage: 1000 MG
     Dates: start: 20040720, end: 20040720
  2. GEMZAR [Suspect]
  3. CARBOPLATIN [Concomitant]
  4. CISPLATIN [Concomitant]
  5. VITAMIN B-12 [Concomitant]
  6. FOLIC ACID [Concomitant]

REACTIONS (15)
  - ACTIVITIES OF DAILY LIVING IMPAIRED [None]
  - ASTHENIA [None]
  - BALANCE DISORDER [None]
  - BONE MARROW DEPRESSION [None]
  - CONFUSIONAL STATE [None]
  - DEATH [None]
  - DISORIENTATION [None]
  - DIZZINESS [None]
  - FALL [None]
  - FATIGUE [None]
  - GAIT DISTURBANCE [None]
  - LABORATORY TEST [None]
  - LABORATORY TEST ABNORMAL [None]
  - MALIGNANT NEOPLASM PROGRESSION [None]
  - PYREXIA [None]
